FAERS Safety Report 15416202 (Version 1)
Quarter: 2018Q3

REPORT INFORMATION
  Report Type: Spontaneous
  Country: DE (occurrence: DE)
  Receive Date: 20180923
  Receipt Date: 20180923
  Transmission Date: 20181010
  Serious: Yes (Hospitalization)
  Sender: FDA-Public Use
  Company Number: DE-ELI_LILLY_AND_COMPANY-DE201809004414

PATIENT
  Age: 17 Year
  Sex: Male
  Weight: 84 kg

DRUGS (1)
  1. STRATTERA [Suspect]
     Active Substance: ATOMOXETINE HYDROCHLORIDE
     Indication: ATTENTION DEFICIT/HYPERACTIVITY DISORDER
     Dosage: UNK, UNKNOWN
     Route: 065
     Dates: start: 201705, end: 20170601

REACTIONS (3)
  - Dysphemia [Recovered/Resolved]
  - Muscle twitching [Recovered/Resolved]
  - Tic [Recovered/Resolved]

NARRATIVE: CASE EVENT DATE: 20170601
